FAERS Safety Report 18861708 (Version 1)
Quarter: 2021Q1

REPORT INFORMATION
  Report Type: Spontaneous
  Country: PL (occurrence: PL)
  Receive Date: 20210209
  Receipt Date: 20210209
  Transmission Date: 20210420
  Serious: Yes (Other)
  Sender: FDA-Public Use
  Company Number: PL-BEH-2021127974

PATIENT

DRUGS (5)
  1. PROGESTERON [Concomitant]
     Active Substance: PROGESTERONE
     Dosage: 1 DOSAGE FORM, QD
     Route: 064
     Dates: start: 20210105, end: 20210115
  2. LUTEIN + [Concomitant]
     Dosage: 1 DOSAGE FORM, QD
     Route: 064
     Dates: start: 20210116, end: 20210118
  3. ANTI?D IMMUNOGLOBULIN (INN) [Suspect]
     Active Substance: HUMAN RHO(D) IMMUNE GLOBULIN
     Indication: PRODUCT USED FOR UNKNOWN INDICATION
     Dosage: 150 MICROGRAM, TOT
     Route: 064
     Dates: start: 20201207, end: 20201207
  4. MAGNESIUM [Concomitant]
     Active Substance: MAGNESIUM
     Dosage: UNK
     Route: 064
     Dates: start: 20210116, end: 20210118
  5. FLUOMIZIN [Concomitant]
     Active Substance: DEQUALINIUM CHLORIDE
     Dosage: 1 DOSAGE FORM (1 TABLET)
     Route: 064
     Dates: start: 20210118

REACTIONS (4)
  - Foetal exposure during pregnancy [Unknown]
  - Low birth weight baby [Unknown]
  - Fallot^s tetralogy [Unknown]
  - Premature baby [Unknown]

NARRATIVE: CASE EVENT DATE: 20210119
